FAERS Safety Report 4534575-9 (Version None)
Quarter: 2004Q4

REPORT INFORMATION
  Report Type: 
  Country: None (occurrence: None)
  Receive Date: 20041214
  Receipt Date: 20040726
  Transmission Date: 20050328
  Serious: No
  Sender: FDA-Public Use
  Company Number: USA040773594

PATIENT
  Age: 81 Year
  Sex: Male

DRUGS (5)
  1. CIALIS [Suspect]
     Dosage: 20 MG DAY
     Dates: start: 20040501
  2. RABEPRAZOLE SODIUM [Concomitant]
  3. DILTIAZEM [Concomitant]
  4. HYDRALAZINE [Concomitant]
  5. IRBESARTAN [Concomitant]

REACTIONS (6)
  - DRUG INEFFECTIVE [None]
  - FATIGUE [None]
  - FEELING JITTERY [None]
  - LETHARGY [None]
  - MENTAL STATUS CHANGES [None]
  - THERAPEUTIC RESPONSE DECREASED [None]
